FAERS Safety Report 10098179 (Version 1)
Quarter: 2014Q2

REPORT INFORMATION
  Report Type: Spontaneous
  Country: US (occurrence: None)
  Receive Date: 20140422
  Receipt Date: 20140422
  Transmission Date: 20141212
  Serious: Yes (Other)
  Sender: FDA-Public Use
  Company Number: None

PATIENT
  Age: 60 Year
  Sex: Female

DRUGS (3)
  1. ERIVEDGE [Suspect]
     Indication: GASTROINTESTINAL NEOPLASM
     Dosage: 150 MG, DAILY, ORAL
     Route: 048
     Dates: start: 20140131
  2. XANAX 0.25 MG [Concomitant]
  3. PANTOPROZOLE 40 MG [Concomitant]

REACTIONS (3)
  - Nausea [None]
  - Diarrhoea [None]
  - Pyrexia [None]
